FAERS Safety Report 4609021-7 (Version None)
Quarter: 2005Q1

REPORT INFORMATION
  Report Type: 
  Country: None (occurrence: None)
  Receive Date: 20050311
  Receipt Date: 20050304
  Transmission Date: 20050727
  Serious: Yes (Disabling, Other)
  Sender: FDA-Public Use
  Company Number: 2005027667

PATIENT
  Sex: Male

DRUGS (8)
  1. LIPITOR [Suspect]
     Indication: BLOOD CHOLESTEROL INCREASED
     Dosage: 10 MG (10 MG , 1 IN 1 D), ORAL
     Route: 048
  2. LISINOPRIL [Concomitant]
  3. TERAZOSIN (TERAZOSIN) [Concomitant]
  4. TAMSULOSIN HYDROCHLORIDE (TAMSULOSIN HYDROCHLORIDE) [Concomitant]
  5. LORAZEPAM [Concomitant]
  6. FINASTERIDE [Concomitant]
  7. NEFAZODONE HCL [Concomitant]
  8. MULTIVITAMINS (ASCORBIC ACID, EROCALCIFEROL, FOLIC  ACID, NICOTINAMIDE [Concomitant]

REACTIONS (9)
  - ASTHENIA [None]
  - CHEST PAIN [None]
  - FATIGUE [None]
  - GOITRE [None]
  - MUSCLE ATROPHY [None]
  - MUSCLE TWITCHING [None]
  - PARKINSONISM [None]
  - ROTATOR CUFF SYNDROME [None]
  - WEIGHT DECREASED [None]
